FAERS Safety Report 17664976 (Version 3)
Quarter: 2020Q3

REPORT INFORMATION
  Report Type: Spontaneous
  Country: US (occurrence: US)
  Receive Date: 20200414
  Receipt Date: 20200717
  Transmission Date: 20201102
  Serious: Yes (Other)
  Sender: FDA-Public Use
  Company Number: US-PFIZER INC-2020151440

PATIENT
  Age: 50 Year
  Sex: Female

DRUGS (1)
  1. XELJANZ [Suspect]
     Active Substance: TOFACITINIB CITRATE
     Dosage: 5 MG
     Dates: start: 20160401

REACTIONS (10)
  - Dysphonia [Unknown]
  - Depression [Unknown]
  - Musculoskeletal stiffness [Unknown]
  - Appetite disorder [Unknown]
  - Joint stiffness [Unknown]
  - Procedural complication [Unknown]
  - Laryngeal injury [Unknown]
  - Arthralgia [Unknown]
  - Fatigue [Unknown]
  - Speech disorder [Unknown]

NARRATIVE: CASE EVENT DATE: 2018
